FAERS Safety Report 18500444 (Version 2)
Quarter: 2020Q4

REPORT INFORMATION
  Report Type: Spontaneous
  Country: US (occurrence: US)
  Receive Date: 20201113
  Receipt Date: 20201126
  Transmission Date: 20210114
  Serious: No
  Sender: FDA-Public Use
  Company Number: US-009507513-2011USA006283

PATIENT
  Sex: Female
  Weight: 161.47 kg

DRUGS (2)
  1. NEXPLANON [Suspect]
     Active Substance: ETONOGESTREL
     Dosage: 68 MG, LEFT ARM
     Route: 059
     Dates: start: 20200226, end: 20201106
  2. NEXPLANON [Suspect]
     Active Substance: ETONOGESTREL
     Dosage: 1 IMPLANT, LEFT ARM
     Route: 059
     Dates: start: 202011

REACTIONS (3)
  - Device breakage [Recovered/Resolved]
  - Pain [Unknown]
  - Implant site scar [Unknown]

NARRATIVE: CASE EVENT DATE: 2020
